FAERS Safety Report 19035732 (Version 5)
Quarter: 2021Q3

REPORT INFORMATION
  Report Type: Spontaneous
  Country: HR (occurrence: HR)
  Receive Date: 20210320
  Receipt Date: 20210813
  Transmission Date: 20211014
  Serious: Yes (Death, Hospitalization, Other)
  Sender: FDA-Public Use
  Company Number: NVSC2020HR127626

PATIENT
  Age: 57 Year
  Sex: Female

DRUGS (18)
  1. PARACETAMOL [Suspect]
     Active Substance: ACETAMINOPHEN
     Indication: PRODUCT USED FOR UNKNOWN INDICATION
     Dosage: UNK
     Route: 065
  2. PEMETREXED DISODIUM [Suspect]
     Active Substance: PEMETREXED DISODIUM
     Indication: LUNG ADENOCARCINOMA STAGE IV
     Dosage: UNK
     Route: 065
     Dates: start: 20200813, end: 20201116
  3. KEYTRUDA [Suspect]
     Active Substance: PEMBROLIZUMAB
     Dosage: UNK
     Route: 065
     Dates: start: 20191227
  4. MEDROL [Concomitant]
     Active Substance: METHYLPREDNISOLONE
     Dosage: 8 MG FOR 3 DAYS
     Route: 065
  5. COLOSPA [Concomitant]
     Active Substance: MEBEVERINE HYDROCHLORIDE
     Indication: PRODUCT USED FOR UNKNOWN INDICATION
     Dosage: UNK (UNK)
     Route: 065
  6. PEMETREXED DISODIUM [Suspect]
     Active Substance: PEMETREXED DISODIUM
     Dosage: UNK
     Route: 065
     Dates: start: 20200424, end: 2020
  7. KEYTRUDA [Suspect]
     Active Substance: PEMBROLIZUMAB
     Dosage: UNK (UNK)
     Route: 065
     Dates: start: 20210430
  8. MEDROL [Concomitant]
     Active Substance: METHYLPREDNISOLONE
     Dosage: 4 MG
     Route: 065
  9. SKUDEXUM [Concomitant]
     Active Substance: DEXKETOPROFEN\TRAMADOL
     Indication: PRODUCT USED FOR UNKNOWN INDICATION
     Dosage: UNK
     Route: 065
  10. KEYTRUDA [Suspect]
     Active Substance: PEMBROLIZUMAB
     Indication: NON-SMALL CELL LUNG CANCER
     Dosage: UNK, 15 CYCLES
     Route: 065
     Dates: start: 201811
  11. KEYTRUDA [Suspect]
     Active Substance: PEMBROLIZUMAB
     Indication: LUNG ADENOCARCINOMA STAGE IV
     Dosage: UNK (UNK)
     Route: 065
     Dates: start: 20190916
  12. KEYTRUDA [Suspect]
     Active Substance: PEMBROLIZUMAB
     Dosage: UNK (UNK)
     Route: 065
     Dates: start: 20191004
  13. MEDROL [Concomitant]
     Active Substance: METHYLPREDNISOLONE
     Indication: INTERVERTEBRAL DISC DISORDER
     Dosage: 16 MG FOR A WEEK
     Route: 065
  14. CONTROLOC [Concomitant]
     Active Substance: PANTOPRAZOLE SODIUM
     Indication: PRODUCT USED FOR UNKNOWN INDICATION
     Dosage: UNK
     Route: 065
  15. KEYTRUDA [Suspect]
     Active Substance: PEMBROLIZUMAB
     Dosage: UNK (UNK)
     Route: 065
     Dates: start: 20191025
  16. KEYTRUDA [Suspect]
     Active Substance: PEMBROLIZUMAB
     Dosage: UNK (UNK)
     Route: 065
     Dates: start: 20191115
  17. KEYTRUDA [Suspect]
     Active Substance: PEMBROLIZUMAB
     Dosage: UNK
     Route: 065
     Dates: start: 20200117
  18. KEYTRUDA [Suspect]
     Active Substance: PEMBROLIZUMAB
     Dosage: UNK
     Route: 065
     Dates: start: 20210430

REACTIONS (59)
  - Hypertension [Not Recovered/Not Resolved]
  - Abdominal rigidity [Not Recovered/Not Resolved]
  - Pulmonary embolism [Unknown]
  - Nausea [Not Recovered/Not Resolved]
  - Euphoric mood [Unknown]
  - Suspected COVID-19 [Unknown]
  - Nail discolouration [Unknown]
  - Nasopharyngitis [Unknown]
  - Weight decreased [Not Recovered/Not Resolved]
  - Vein collapse [Not Recovered/Not Resolved]
  - Pneumonitis [Recovered/Resolved]
  - Ileus [Not Recovered/Not Resolved]
  - Dysgeusia [Recovered/Resolved]
  - Blood urea increased [Unknown]
  - Pyrexia [Unknown]
  - Skin depigmentation [Unknown]
  - Dry skin [Not Recovered/Not Resolved]
  - Asthenia [Unknown]
  - Pleural effusion [Recovered/Resolved]
  - Eyelid sensory disorder [Recovering/Resolving]
  - Headache [Recovered/Resolved]
  - Feeling abnormal [Recovered/Resolved]
  - Death [Fatal]
  - Poor peripheral circulation [Not Recovered/Not Resolved]
  - Pathological fracture [Unknown]
  - Osteoporosis [Unknown]
  - Euphoric mood [Recovered/Resolved]
  - Gastroenteritis viral [Recovered/Resolved]
  - Psychomotor hyperactivity [Unknown]
  - Dysgeusia [Recovered/Resolved]
  - Nausea [Recovered/Resolved]
  - Alanine aminotransferase increased [Unknown]
  - Hepatomegaly [Not Recovered/Not Resolved]
  - Pleural effusion [Not Recovered/Not Resolved]
  - Blood thyroid stimulating hormone decreased [Recovering/Resolving]
  - Blood thyroid stimulating hormone increased [Recovering/Resolving]
  - Headache [Recovering/Resolving]
  - Pyrexia [Unknown]
  - Cardiac murmur [Not Recovered/Not Resolved]
  - Vomiting [Not Recovered/Not Resolved]
  - Ascites [Not Recovered/Not Resolved]
  - Insomnia [Unknown]
  - Otitis media [Unknown]
  - Nausea [Recovered/Resolved]
  - Pyrexia [Recovered/Resolved]
  - Nausea [Recovered/Resolved]
  - Breath sounds abnormal [Not Recovered/Not Resolved]
  - Flatulence [Unknown]
  - Mucosal dryness [Not Recovered/Not Resolved]
  - Thrombocytopenia [Unknown]
  - Diarrhoea [Recovered/Resolved]
  - Circumstance or information capable of leading to medication error [Unknown]
  - Product dose omission issue [Unknown]
  - Deep vein thrombosis [Unknown]
  - Malignant neoplasm progression [Not Recovered/Not Resolved]
  - Oedema peripheral [Not Recovered/Not Resolved]
  - Vitiligo [Unknown]
  - Aspartate aminotransferase increased [Unknown]
  - Inappropriate schedule of product administration [Unknown]

NARRATIVE: CASE EVENT DATE: 20191004
